FAERS Safety Report 9795266 (Version 1)
Quarter: 2014Q1

REPORT INFORMATION
  Report Type: Report from Study
  Country: US (occurrence: US)
  Receive Date: 20140103
  Receipt Date: 20140103
  Transmission Date: 20141002
  Serious: Yes (Other)
  Sender: FDA-Public Use
  Company Number: US-ROCHE-1328595

PATIENT
  Age: 73 Year
  Sex: 0

DRUGS (2)
  1. RITUXIMAB [Suspect]
     Indication: PRODUCT USED FOR UNKNOWN INDICATION
     Route: 042
     Dates: start: 20110512, end: 20110706
  2. BENDAMUSTINE [Concomitant]
     Dosage: DAY AND DAY 2
     Route: 042
     Dates: start: 20110511, end: 20110706

REACTIONS (1)
  - Pleural effusion [Unknown]
